FAERS Safety Report 16043804 (Version 6)
Quarter: 2021Q2

REPORT INFORMATION
  Report Type: Spontaneous
  Country: US (occurrence: US)
  Receive Date: 20190306
  Receipt Date: 20210604
  Transmission Date: 20210716
  Serious: Yes (Hospitalization, Other)
  Sender: FDA-Public Use
  Company Number: US-PFIZER INC-2018376825

PATIENT
  Age: 69 Year
  Sex: Male
  Weight: 86.18 kg

DRUGS (2)
  1. PREPARATION H MEDICATED WIPES [Suspect]
     Active Substance: WITCH HAZEL
     Dosage: UNK, UNK (1 WIPE IN EVE, 1 THE FOLLOWING MORNING)
  2. PREPARATION H MEDICATED WIPES [Suspect]
     Active Substance: WITCH HAZEL
     Indication: HAEMORRHOIDS
     Dosage: UNK, UNK (ONE WIPE THE FIRST DAY, MAYBE TWICE THE SECOND DAY, AND MAYBE ONCE THE THIRD DAY)

REACTIONS (8)
  - Headache [Recovered/Resolved]
  - Wound secretion [Recovered/Resolved]
  - Wound haemorrhage [Recovered/Resolved]
  - Feeling abnormal [Recovered/Resolved]
  - Product complaint [Recovered/Resolved]
  - Wound [Recovered/Resolved]
  - Pain [Recovered/Resolved]
  - Application site pain [Recovered/Resolved]

NARRATIVE: CASE EVENT DATE: 2018
